FAERS Safety Report 6297389-8 (Version None)
Quarter: 2009Q3

REPORT INFORMATION
  Report Type: 
  Country: None (occurrence: None)
  Receive Date: 20090805
  Receipt Date: 20090723
  Transmission Date: 20100115
  Serious: Yes (Other)
  Sender: FDA-Public Use
  Company Number: PHHY2009BR31015

PATIENT
  Age: 28 Year
  Sex: Female
  Weight: 59 kg

DRUGS (2)
  1. FLOTAC [Suspect]
     Indication: OOPHORITIS
     Dosage: 1 CAPSULE
     Route: 048
     Dates: start: 20090722
  2. CEFALIV [Concomitant]
     Indication: HEADACHE
     Dosage: ONE TAB TAKEN 30 MINS BEFORE FLOTAC INTAKE
     Route: 048

REACTIONS (5)
  - ABDOMINAL PAIN UPPER [None]
  - BACK PAIN [None]
  - DYSPNOEA [None]
  - FATIGUE [None]
  - TREMOR [None]
